FAERS Safety Report 5893365-5 (Version None)
Quarter: 2008Q3

REPORT INFORMATION
  Report Type: 
  Country: None (occurrence: None)
  Receive Date: 20080919
  Receipt Date: 20080904
  Transmission Date: 20090109
  Serious: Yes (Other)
  Sender: FDA-Public Use
  Company Number: 2008EU001849

PATIENT
  Sex: Male

DRUGS (1)
  1. VESICARE [Suspect]
     Indication: INCONTINENCE
     Dosage: /D, ORAL
     Route: 048
     Dates: start: 20080501, end: 20080901

REACTIONS (3)
  - CHEILITIS [None]
  - GINGIVITIS [None]
  - MUCOSAL INFLAMMATION [None]
